FAERS Safety Report 20931122 (Version 1)
Quarter: 2022Q2

REPORT INFORMATION
  Report Type: Report from Study
  Country: IN (occurrence: IN)
  Receive Date: 20220608
  Receipt Date: 20220608
  Transmission Date: 20220720
  Serious: Yes (Other)
  Sender: FDA-Public Use
  Company Number: IN-Merck Healthcare KGaA-9322114

PATIENT
  Age: 56 Year
  Sex: Male

DRUGS (4)
  1. CETUXIMAB [Suspect]
     Active Substance: CETUXIMAB
     Indication: Head and neck cancer metastatic
     Dosage: 900 MG, 2/M
     Route: 042
     Dates: start: 20210722
  2. CETUXIMAB [Suspect]
     Active Substance: CETUXIMAB
     Dosage: 700 MG, UNKNOWN
     Route: 042
  3. CARBOPLATIN [Concomitant]
     Active Substance: CARBOPLATIN
     Indication: Head and neck cancer metastatic
  4. PACLITAXEL [Concomitant]
     Active Substance: PACLITAXEL
     Indication: Head and neck cancer metastatic

REACTIONS (4)
  - Dyspnoea [Unknown]
  - Tracheostomy infection [Unknown]
  - Weight decreased [Unknown]
  - Off label use [Unknown]

NARRATIVE: CASE EVENT DATE: 20220329
